FAERS Safety Report 16137262 (Version 1)
Quarter: 2019Q2

REPORT INFORMATION
  Report Type: Spontaneous
  Country: FR (occurrence: FR)
  Receive Date: 20190401
  Receipt Date: 20190401
  Transmission Date: 20190711
  Serious: Yes (Hospitalization, Other)
  Sender: FDA-Public Use
  Company Number: FR-SUN PHARMACEUTICAL INDUSTRIES LTD-2019RR-203566

PATIENT
  Age: 30 Year
  Sex: Female

DRUGS (2)
  1. KLIPAL CODEINE 600 MG/50 MG, COMPRIME [Suspect]
     Active Substance: ACETAMINOPHEN\CODEINE PHOSPHATE
     Indication: PRODUCT USED FOR UNKNOWN INDICATION
     Dosage: 12 DOSAGE FORM, DAILY
     Route: 048
  2. ZOLPIDEM [Suspect]
     Active Substance: ZOLPIDEM\ZOLPIDEM TARTRATE
     Indication: PRODUCT USED FOR UNKNOWN INDICATION
     Dosage: 280 MILLIGRAM, DAILY
     Route: 048

REACTIONS (3)
  - Withdrawal syndrome [Recovering/Resolving]
  - Drug detoxification [Recovering/Resolving]
  - Drug dependence [Recovering/Resolving]
